FAERS Safety Report 20388624 (Version 1)
Quarter: 2022Q1

REPORT INFORMATION
  Report Type: Spontaneous
  Country: US (occurrence: US)
  Receive Date: 20220128
  Receipt Date: 20220128
  Transmission Date: 20220424
  Serious: No
  Sender: FDA-Public Use
  Company Number: US-ENDO PHARMACEUTICALS INC-2021-012222

PATIENT
  Sex: Female
  Weight: 53.515 kg

DRUGS (4)
  1. QWO [Suspect]
     Active Substance: COLLAGENASE CLOSTRIDIUM HISTOLYTICUM-AAES
     Indication: Cellulite
     Dosage: UNK, UNKNOWN (TREATMENT ONE, SIX INJECTIONS IN BUTTOCKS AND 12 INJECTIONS IN THE THIGHS)
     Route: 065
     Dates: start: 20210615
  2. QWO [Suspect]
     Active Substance: COLLAGENASE CLOSTRIDIUM HISTOLYTICUM-AAES
     Dosage: UNK, UNKNOWN (TREATMENT TWO, SIX INJECTIONS IN BUTTOCKS AND 12 INJECTIONS IN THE THIGHS)
     Route: 065
     Dates: start: 20210708
  3. QWO [Suspect]
     Active Substance: COLLAGENASE CLOSTRIDIUM HISTOLYTICUM-AAES
     Dosage: UNK, UNKNOWN (TREATMENT THIRD, SIX INJECTIONS IN BUTTOCKS AND 12 INJECTIONS IN THE THIGHS)
     Route: 065
     Dates: start: 20210729
  4. QWO [Suspect]
     Active Substance: COLLAGENASE CLOSTRIDIUM HISTOLYTICUM-AAES
     Dosage: UNK, UNKNOWN (TREATMENT FOUR, SIX INJECTIONS IN BUTTOCKS AND 12 INJECTIONS IN THE THIGHS)
     Route: 065
     Dates: start: 20210819

REACTIONS (7)
  - Condition aggravated [Not Recovered/Not Resolved]
  - Cellulite [Not Recovered/Not Resolved]
  - Haemosiderin stain [Not Recovered/Not Resolved]
  - Skin indentation [Not Recovered/Not Resolved]
  - Injection site bruising [Not Recovered/Not Resolved]
  - Drug effect less than expected [Unknown]
  - Off label use [Unknown]

NARRATIVE: CASE EVENT DATE: 20210101
